FAERS Safety Report 6213441-7 (Version None)
Quarter: 2009Q2

REPORT INFORMATION
  Report Type: 
  Country: None (occurrence: None)
  Receive Date: 20090603
  Receipt Date: 20090526
  Transmission Date: 20091009
  Serious: Yes (Life-Threatening, Hospitalization, Disabling)
  Sender: FDA-Public Use
  Company Number: CH-PURDUE-DEU_2009_0005132

PATIENT

DRUGS (2)
  1. MORPHINE SULFATE CR CAPSULE DAILY [Suspect]
     Indication: DRUG DEPENDENCE
     Route: 048
  2. HEROIN [Suspect]
     Indication: DRUG ABUSER

REACTIONS (2)
  - THROMBOPHLEBITIS SEPTIC [None]
  - THROMBOSIS [None]
